FAERS Safety Report 4370758-9 (Version None)
Quarter: 2004Q2

REPORT INFORMATION
  Report Type: 
  Country: None (occurrence: None)
  Receive Date: 20040601
  Receipt Date: 20040521
  Transmission Date: 20050107
  Serious: Yes (Other)
  Sender: FDA-Public Use
  Company Number: DEU-2004-0000814

PATIENT
  Age: 51 Year
  Sex: Male

DRUGS (1)
  1. OXYCODONE HCL [Suspect]
     Dosage: 20 MG, BID, ORAL
     Route: 048

REACTIONS (2)
  - NEPHROLITHIASIS [None]
  - RENAL COLIC [None]
